FAERS Safety Report 7287017-7 (Version None)
Quarter: 2011Q1

REPORT INFORMATION
  Report Type: 
  Country: None (occurrence: None)
  Receive Date: 20110211
  Receipt Date: 20110127
  Transmission Date: 20110831
  Serious: No
  Sender: FDA-Public Use
  Company Number: US-BIOGENIDEC-2011BI004245

PATIENT
  Age: 49 Year
  Sex: Female

DRUGS (1)
  1. TYSABRI [Suspect]
     Indication: MULTIPLE SCLEROSIS
     Route: 042
     Dates: start: 20101109

REACTIONS (7)
  - BALANCE DISORDER [None]
  - COGNITIVE DISORDER [None]
  - GAIT DISTURBANCE [None]
  - DRUG INEFFECTIVE [None]
  - TREMOR [None]
  - MUSCLE ATROPHY [None]
  - ASTHENIA [None]
